FAERS Safety Report 9526356 (Version 1)
Quarter: 2013Q3

REPORT INFORMATION
  Report Type: Spontaneous
  Country: US (occurrence: US)
  Receive Date: 20130916
  Receipt Date: 20130916
  Transmission Date: 20140515
  Serious: No
  Sender: FDA-Public Use
  Company Number: US-TEVA-432261USA

PATIENT
  Sex: Female

DRUGS (2)
  1. CLARAVIS [Suspect]
     Route: 048
  2. ISOTRETINOIN [Suspect]
     Route: 048
     Dates: start: 20070117

REACTIONS (1)
  - Sinusitis [Unknown]
